FAERS Safety Report 24820520 (Version 1)
Quarter: 2025Q1

REPORT INFORMATION
  Report Type: Spontaneous
  Country: US (occurrence: US)
  Receive Date: 20250108
  Receipt Date: 20250108
  Transmission Date: 20250409
  Serious: Yes (Hospitalization)
  Sender: MYLAN
  Company Number: US-MYLANLABS-2024M1118266

PATIENT
  Age: 53 Year
  Sex: Female

DRUGS (17)
  1. MYCOPHENOLATE MOFETIL [Suspect]
     Active Substance: MYCOPHENOLATE MOFETIL
     Indication: Autoimmune hepatitis
     Dosage: 1000 MILLIGRAM, BID
     Route: 065
     Dates: start: 202206, end: 202208
  2. MYCOPHENOLATE MOFETIL [Suspect]
     Active Substance: MYCOPHENOLATE MOFETIL
     Dosage: 1500 MILLIGRAM, BID
     Route: 065
     Dates: start: 202208, end: 202305
  3. AZATHIOPRINE [Suspect]
     Active Substance: AZATHIOPRINE
     Indication: Autoimmune hepatitis
     Route: 065
     Dates: start: 202108, end: 202112
  4. AZATHIOPRINE [Suspect]
     Active Substance: AZATHIOPRINE
     Route: 065
     Dates: start: 202112, end: 202206
  5. RITUXIMAB [Suspect]
     Active Substance: RITUXIMAB
     Indication: Autoimmune hepatitis
     Route: 065
     Dates: start: 202212, end: 202302
  6. BELIMUMAB [Concomitant]
     Active Substance: BELIMUMAB
     Indication: Autoimmune hepatitis
     Route: 065
     Dates: end: 202302
  7. HYDROXYCHLOROQUINE [Concomitant]
     Active Substance: HYDROXYCHLOROQUINE
     Indication: Systemic lupus erythematosus
     Route: 065
  8. PREDNISONE [Concomitant]
     Active Substance: PREDNISONE
     Indication: Autoimmune hepatitis
     Dosage: 60 MILLIGRAM, QD
     Route: 048
     Dates: start: 202108, end: 202108
  9. PREDNISONE [Concomitant]
     Active Substance: PREDNISONE
     Route: 048
     Dates: start: 202108, end: 202206
  10. PREDNISONE [Concomitant]
     Active Substance: PREDNISONE
     Route: 048
     Dates: start: 202206, end: 202208
  11. PREDNISONE [Concomitant]
     Active Substance: PREDNISONE
     Dosage: 10 MILLIGRAM, QD, TAPER
     Route: 048
     Dates: start: 202208, end: 202302
  12. PREDNISONE [Concomitant]
     Active Substance: PREDNISONE
     Dosage: 40 MILLIGRAM, QD
     Route: 048
     Dates: start: 202302, end: 202302
  13. PREDNISONE [Concomitant]
     Active Substance: PREDNISONE
     Route: 048
     Dates: start: 202302
  14. PREDNISONE [Concomitant]
     Active Substance: PREDNISONE
     Dosage: 20 MILLIGRAM, QD, TAPER
     Route: 048
     Dates: start: 202305
  15. TACROLIMUS [Concomitant]
     Active Substance: TACROLIMUS
     Indication: Autoimmune hepatitis
     Dosage: 1 MILLIGRAM, BID
     Route: 065
     Dates: start: 202203, end: 202305
  16. TACROLIMUS [Concomitant]
     Active Substance: TACROLIMUS
     Dosage: 2 MILLIGRAM, BID
     Route: 065
     Dates: start: 202305
  17. METHYLPREDNISOLONE [Concomitant]
     Active Substance: METHYLPREDNISOLONE
     Indication: Systemic lupus erythematosus
     Route: 042
     Dates: start: 202302

REACTIONS (2)
  - Drug ineffective for unapproved indication [Unknown]
  - Off label use [Unknown]

NARRATIVE: CASE EVENT DATE: 20220601
